FAERS Safety Report 14564842 (Version 1)
Quarter: 2018Q1

REPORT INFORMATION
  Report Type: Spontaneous
  Country: US (occurrence: US)
  Receive Date: 20180223
  Receipt Date: 20180223
  Transmission Date: 20180509
  Serious: No
  Sender: FDA-Public Use
  Company Number: US-SHIRE-US201806818

PATIENT
  Sex: Female

DRUGS (1)
  1. XIIDRA [Suspect]
     Active Substance: LIFITEGRAST
     Indication: PRODUCT USED FOR UNKNOWN INDICATION
     Route: 047

REACTIONS (9)
  - Malaise [Unknown]
  - Erythema [Unknown]
  - Dizziness [Unknown]
  - Nausea [Unknown]
  - Oral herpes [Unknown]
  - Instillation site pain [Unknown]
  - Asthenia [Unknown]
  - Product taste abnormal [Unknown]
  - Palpitations [Unknown]
